FAERS Safety Report 4428714-8 (Version None)
Quarter: 2004Q3

REPORT INFORMATION
  Report Type: 
  Country: None (occurrence: None)
  Receive Date: 20040818
  Receipt Date: 20040120
  Transmission Date: 20050211
  Serious: No
  Sender: FDA-Public Use
  Company Number: US-BRISTOL-MYERS SQUIBB COMPANY-12480885

PATIENT
  Age: 34 Year
  Sex: Female
  Weight: 78 kg

DRUGS (2)
  1. TEQUIN [Suspect]
     Indication: SINUSITIS
     Route: 048
     Dates: start: 20040106, end: 20040111
  2. LEVOXYL [Concomitant]

REACTIONS (3)
  - FEELING ABNORMAL [None]
  - NAUSEA [None]
  - PREGNANCY [None]
